FAERS Safety Report 7802205-6 (Version None)
Quarter: 2011Q4

REPORT INFORMATION
  Report Type: 
  Country: None (occurrence: None)
  Receive Date: 20111007
  Receipt Date: 20111003
  Transmission Date: 20120403
  Serious: Yes (Other)
  Sender: FDA-Public Use
  Company Number: US-PFIZER INC-2011235824

PATIENT
  Sex: Female

DRUGS (1)
  1. NEURONTIN [Suspect]
     Indication: ANXIETY
     Dosage: 200 MG, 3X/DAY
     Route: 048
     Dates: start: 20110901

REACTIONS (1)
  - OPTIC NEUROPATHY [None]
